FAERS Safety Report 10288322 (Version 3)
Quarter: 2014Q4

REPORT INFORMATION
  Report Type: Spontaneous
  Country: US (occurrence: US)
  Receive Date: 20140709
  Receipt Date: 20141027
  Transmission Date: 20150528
  Serious: Yes (Hospitalization)
  Sender: FDA-Public Use
  Company Number: US-PFIZER INC-2014188229

PATIENT
  Age: 68 Year
  Sex: Female
  Weight: 88 kg

DRUGS (5)
  1. LYRICA [Suspect]
     Active Substance: PREGABALIN
     Indication: EPILEPSY
  2. LYRICA [Suspect]
     Active Substance: PREGABALIN
     Indication: FIBROMYALGIA
  3. CARBAMAZEPINE. [Concomitant]
     Active Substance: CARBAMAZEPINE
     Dosage: 200 MG (TWO IN THE MORNING, TWO IN THE NIGHT AND ONE IN AFTERNOON), 3X/DAY
  4. PRIMIDONE. [Concomitant]
     Active Substance: PRIMIDONE
     Dosage: 250 MG, 2X/DAY
  5. LYRICA [Suspect]
     Active Substance: PREGABALIN
     Indication: NEUROPATHY PERIPHERAL
     Dosage: 150 MG, 3X/DAY
     Route: 048

REACTIONS (3)
  - Bladder disorder [Recovered/Resolved]
  - Dehydration [Recovered/Resolved]
  - Cyclic vomiting syndrome [Recovered/Resolved]

NARRATIVE: CASE EVENT DATE: 2014
